FAERS Safety Report 6433369-7 (Version None)
Quarter: 2009Q4

REPORT INFORMATION
  Report Type: 
  Country: None (occurrence: None)
  Receive Date: 20091105
  Receipt Date: 20091022
  Transmission Date: 20100525
  Serious: Yes (Other)
  Sender: FDA-Public Use
  Company Number: B0600665A

PATIENT
  Sex: 0

DRUGS (4)
  1. ASPIRIN [Suspect]
  2. OMEGA-3-ACID ETHYL ESTERS [Suspect]
  3. OMEGA-3-ACID ETHYL ESTERS [Suspect]
  4. CLOPIDOGREL [Suspect]

REACTIONS (1)
  - RECTAL HAEMORRHAGE [None]
